FAERS Safety Report 17013714 (Version 1)
Quarter: 2019Q4

REPORT INFORMATION
  Report Type: Report from Study
  Country: None (occurrence: BR)
  Receive Date: 20191110
  Receipt Date: 20191110
  Transmission Date: 20200122
  Serious: Yes (Hospitalization, Other)
  Sender: FDA-Public Use
  Company Number: BR-ABBVIE-19K-020-2992298-00

PATIENT
  Age: 43 Year
  Sex: Female
  Weight: 63 kg

DRUGS (1)
  1. HUMIRA [Suspect]
     Active Substance: ADALIMUMAB
     Indication: PSORIATIC ARTHROPATHY
     Route: 058
     Dates: start: 20190525

REACTIONS (8)
  - Brain hypoxia [Unknown]
  - Hemiplegic migraine [Unknown]
  - Migraine [Not Recovered/Not Resolved]
  - Pain [Unknown]
  - Hypoacusis [Unknown]
  - Cerebrovascular accident [Unknown]
  - Auditory disorder [Unknown]
  - Hypoaesthesia [Unknown]

NARRATIVE: CASE EVENT DATE: 2019
